FAERS Safety Report 13307202 (Version 2)
Quarter: 2017Q1

REPORT INFORMATION
  Report Type: Spontaneous
  Country: FR (occurrence: FR)
  Receive Date: 20170308
  Receipt Date: 20170329
  Transmission Date: 20170428
  Serious: Yes (Other)
  Sender: FDA-Public Use
  Company Number: FR-BRISTOL-MYERS SQUIBB COMPANY-BMS-2017-020220

PATIENT
  Sex: Male

DRUGS (1)
  1. OPDIVO [Suspect]
     Active Substance: NIVOLUMAB
     Indication: NEUROENDOCRINE CARCINOMA
     Dosage: 250 MG, UNK
     Route: 042
     Dates: start: 201606, end: 20170206

REACTIONS (5)
  - Atrioventricular block [Unknown]
  - Product use issue [Unknown]
  - Conduction disorder [Unknown]
  - Cardiac pacemaker insertion [Unknown]
  - Arthralgia [Unknown]
